FAERS Safety Report 19243088 (Version 3)
Quarter: 2021Q3

REPORT INFORMATION
  Report Type: Spontaneous
  Country: US (occurrence: US)
  Receive Date: 20210511
  Receipt Date: 20210826
  Transmission Date: 20211014
  Serious: Yes (Death, Other)
  Sender: FDA-Public Use
  Company Number: US-G1-000296

PATIENT
  Age: 67 Year
  Sex: Male
  Weight: 70.67 kg

DRUGS (8)
  1. COSELA [Suspect]
     Active Substance: TRILACICLIB DIHYDROCHLORIDE
     Indication: MYELOSUPPRESSION
     Route: 042
     Dates: start: 20210329, end: 20210331
  2. 66629 (GLOBALC3SEP20): PALONOSETRON [Concomitant]
     Dates: start: 20210329
  3. ETOPOSIDE. [Concomitant]
     Active Substance: ETOPOSIDE
     Dates: start: 20210329, end: 20210331
  4. 2178348 (GLOBALC3SEP20): DENOSUMAB [Concomitant]
     Dates: start: 20210329
  5. 59068 (GLOBALC3SEP20): EMEND [Concomitant]
     Dates: start: 20210329
  6. PARAPLATIN [Concomitant]
     Active Substance: CARBOPLATIN
     Dates: start: 20210329
  7. TECENTRIQ [Concomitant]
     Active Substance: ATEZOLIZUMAB
  8. 68065 (GLOBALC3SEP20): DECADRON [Concomitant]
     Dates: start: 20210329

REACTIONS (2)
  - Swelling face [Unknown]
  - Epistaxis [Unknown]

NARRATIVE: CASE EVENT DATE: 20210405
